FAERS Safety Report 21714436 (Version 1)
Quarter: 2022Q4

REPORT INFORMATION
  Report Type: Report from Study
  Country: US (occurrence: None)
  Receive Date: 20221212
  Receipt Date: 20221212
  Transmission Date: 20230113
  Serious: Yes (Hospitalization)
  Sender: FDA-Public Use
  Company Number: 2022A398141

PATIENT
  Age: 22025 Day
  Sex: Male

DRUGS (2)
  1. CRESTOR [Suspect]
     Active Substance: ROSUVASTATIN CALCIUM
     Indication: Blood cholesterol increased
     Dosage: QD
     Route: 048
     Dates: start: 20220528, end: 20221124
  2. INVESTIGATIONAL PRODUCT [Suspect]
     Active Substance: INVESTIGATIONAL PRODUCT
     Indication: Blood cholesterol increased

REACTIONS (1)
  - Chromophobe renal cell carcinoma [Unknown]

NARRATIVE: CASE EVENT DATE: 20221011
